FAERS Safety Report 6307653-1 (Version None)
Quarter: 2009Q3

REPORT INFORMATION
  Report Type: 
  Country: None (occurrence: None)
  Receive Date: 20090813
  Receipt Date: 20090804
  Transmission Date: 20100115
  Serious: Yes (Hospitalization)
  Sender: FDA-Public Use
  Company Number: PHHY2009CR32346

PATIENT
  Age: 47 Year
  Sex: Male

DRUGS (2)
  1. DIOVAN HCT [Suspect]
     Indication: HYPERTENSION
     Dosage: 80/12.5MG PER DAY
     Route: 048
     Dates: end: 20090723
  2. METFORMIN [Concomitant]

REACTIONS (9)
  - COUGH [None]
  - HEADACHE [None]
  - HYPOXIA [None]
  - INFLUENZA [None]
  - LUNG INFILTRATION [None]
  - MUSCULOSKELETAL PAIN [None]
  - OROPHARYNGEAL PAIN [None]
  - PYREXIA [None]
  - RESPIRATORY DISTRESS [None]
